FAERS Safety Report 7411239-5 (Version None)
Quarter: 2011Q2

REPORT INFORMATION
  Report Type: 
  Country: None (occurrence: None)
  Receive Date: 20110413
  Receipt Date: 20100428
  Transmission Date: 20111010
  Serious: No
  Sender: FDA-Public Use
  Company Number: US-BRISTOL-MYERS SQUIBB COMPANY-15068430

PATIENT
  Sex: Female

DRUGS (3)
  1. IRINOTECAN HCL [Suspect]
  2. NEUPOGEN [Suspect]
  3. ERBITUX [Suspect]

REACTIONS (2)
  - NASAL DISCOMFORT [None]
  - ORAL DISCOMFORT [None]
